FAERS Safety Report 10214278 (Version 2)
Quarter: 2014Q3

REPORT INFORMATION
  Report Type: Spontaneous
  Country: US (occurrence: US)
  Receive Date: 20140603
  Receipt Date: 20140820
  Transmission Date: 20150326
  Serious: No
  Sender: FDA-Public Use
  Company Number: US-PFIZER INC-2014150358

PATIENT
  Age: 53 Year
  Sex: Female
  Weight: 63.49 kg

DRUGS (6)
  1. LYRICA [Suspect]
     Active Substance: PREGABALIN
     Indication: FIBROMYALGIA
     Dosage: 150 MG, 4X/DAY
     Route: 048
     Dates: start: 2011, end: 20140811
  2. LYRICA [Suspect]
     Active Substance: PREGABALIN
     Indication: PAIN
  3. LYRICA [Suspect]
     Active Substance: PREGABALIN
     Indication: NEURALGIA
  4. CYMBALTA [Concomitant]
     Active Substance: DULOXETINE HYDROCHLORIDE
     Dosage: UNK
  5. KLONOPIN [Concomitant]
     Active Substance: CLONAZEPAM
     Dosage: UNK
  6. LYRICA [Suspect]
     Active Substance: PREGABALIN
     Indication: PARAESTHESIA

REACTIONS (10)
  - Nerve compression [Unknown]
  - Intervertebral disc protrusion [Unknown]
  - Night sweats [Unknown]
  - Pain in extremity [Unknown]
  - Hypoaesthesia [Unknown]
  - Depressed mood [Unknown]
  - Visual impairment [Unknown]
  - Malaise [Unknown]
  - Muscle twitching [Unknown]
  - Back pain [Unknown]

NARRATIVE: CASE EVENT DATE: 2014
